FAERS Safety Report 5940501-8 (Version None)
Quarter: 2008Q4

REPORT INFORMATION
  Report Type: 
  Country: None (occurrence: None)
  Receive Date: 20081103
  Receipt Date: 20081103
  Transmission Date: 20090506
  Serious: Yes (Other)
  Sender: FDA-Public Use
  Company Number: None

PATIENT
  Age: 22 Month
  Sex: Female

DRUGS (2)
  1. CEFDINIR [Suspect]
     Dosage: POWDER FOR RECONSTITUTION
  2. AMOXICILLIN [Suspect]
     Dosage: POWDER FOR RECONSTITUTION

REACTIONS (10)
  - CRYING [None]
  - DIARRHOEA [None]
  - DRUG DISPENSING ERROR [None]
  - FAECES DISCOLOURED [None]
  - INCORRECT DOSE ADMINISTERED [None]
  - MEDICATION ERROR [None]
  - MUSCLE SPASMS [None]
  - PAIN [None]
  - SCREAMING [None]
  - WRONG DRUG ADMINISTERED [None]
